FAERS Safety Report 9102009 (Version 3)
Quarter: 2014Q2

REPORT INFORMATION
  Report Type: Spontaneous
  Country: US (occurrence: US)
  Receive Date: 20130218
  Receipt Date: 20140516
  Transmission Date: 20141212
  Serious: Yes (Hospitalization, Other)
  Sender: FDA-Public Use
  Company Number: US-BAYER-2013-018208

PATIENT
  Age: 39 Year
  Sex: Female
  Weight: 75 kg

DRUGS (3)
  1. MIRENA [Suspect]
     Indication: CONTRACEPTION
     Dosage: 20 MCG/24HR, CONT
     Route: 015
     Dates: start: 20091109, end: 20100111
  2. NUVARING [Concomitant]
     Indication: CONTRACEPTION
  3. BACTRIM [Concomitant]
     Indication: URINARY TRACT INFECTION

REACTIONS (5)
  - Uterine perforation [None]
  - Genital haemorrhage [None]
  - Post procedural discomfort [None]
  - Pain [None]
  - Injury [None]
